FAERS Safety Report 23221662 (Version 1)
Quarter: 2023Q4

REPORT INFORMATION
  Report Type: Report from Study
  Country: BR (occurrence: BR)
  Receive Date: 20231123
  Receipt Date: 20231123
  Transmission Date: 20240110
  Serious: Yes (Other)
  Sender: FDA-Public Use
  Company Number: BR-Accord-391234

PATIENT
  Age: 7 Year

DRUGS (2)
  1. METHOTREXATE [Suspect]
     Active Substance: METHOTREXATE
     Indication: Polyarteritis nodosa
  2. ETANERCEPT [Suspect]
     Active Substance: ETANERCEPT
     Indication: Polyarteritis nodosa

REACTIONS (3)
  - Disseminated tuberculosis [Unknown]
  - Haemophagocytic lymphohistiocytosis [Unknown]
  - Off label use [Unknown]

NARRATIVE: CASE EVENT DATE: 20190101
